FAERS Safety Report 7012970-6 (Version None)
Quarter: 2010Q3

REPORT INFORMATION
  Report Type: 
  Country: None (occurrence: None)
  Receive Date: 20100915
  Receipt Date: 20090819
  Transmission Date: 20110219
  Serious: Yes (Other)
  Sender: FDA-Public Use
  Company Number: US-WYE-H10670509

PATIENT
  Age: 52 Year
  Sex: Female
  Weight: 81.72 kg

DRUGS (1)
  1. ADVIL [Suspect]
     Indication: BACK PAIN
     Dosage: 2 LIQUI-GELS A FEW TIMES PER WEEK, ORAL
     Route: 048
     Dates: start: 20090101, end: 20090818

REACTIONS (1)
  - CHOKING [None]
